FAERS Safety Report 6746791-6 (Version None)
Quarter: 2010Q2

REPORT INFORMATION
  Report Type: 
  Country: None (occurrence: None)
  Receive Date: 20100528
  Receipt Date: 20091103
  Transmission Date: 20101027
  Serious: No
  Sender: FDA-Public Use
  Company Number: A0814749A

PATIENT
  Age: 18 Year
  Sex: Female

DRUGS (2)
  1. VENTOLIN [Suspect]
     Indication: PNEUMONIA
     Route: 055
     Dates: start: 20091026, end: 20091028
  2. AZITHROMYCIN [Concomitant]

REACTIONS (2)
  - RASH [None]
  - RASH ERYTHEMATOUS [None]
